FAERS Safety Report 22070511 (Version 1)
Quarter: 2023Q1

REPORT INFORMATION
  Report Type: Spontaneous
  Country: US (occurrence: None)
  Receive Date: 20230307
  Receipt Date: 20230307
  Transmission Date: 20230417
  Serious: Yes (Disabling, Other)
  Sender: FDA-Public Use
  Company Number: None

PATIENT
  Age: 69 Year
  Sex: Female
  Weight: 82.35 kg

DRUGS (5)
  1. CIMZIA [Suspect]
     Active Substance: CERTOLIZUMAB PEGOL
     Indication: Rheumatoid arthritis
     Route: 058
     Dates: start: 20220114, end: 20230214
  2. ROPINIROLE [Concomitant]
     Active Substance: ROPINIROLE
  3. OXYCODONE [Concomitant]
     Active Substance: OXYCODONE
  4. DULOXETINE [Concomitant]
     Active Substance: DULOXETINE
  5. MELOXICAM [Concomitant]
     Active Substance: MELOXICAM

REACTIONS (8)
  - Peripheral swelling [None]
  - Joint swelling [None]
  - Mass [None]
  - Hypoaesthesia [None]
  - Paraesthesia [None]
  - Pain [None]
  - Muscular weakness [None]
  - Asthenia [None]

NARRATIVE: CASE EVENT DATE: 20230201
